FAERS Safety Report 24867209 (Version 1)
Quarter: 2025Q1

REPORT INFORMATION
  Report Type: Spontaneous
  Country: US (occurrence: US)
  Receive Date: 20250121
  Receipt Date: 20250121
  Transmission Date: 20250409
  Serious: Yes (Disabling, Other)
  Sender: SANOFI AVENTIS
  Company Number: US-SANOFI-02375952

PATIENT
  Sex: Female

DRUGS (1)
  1. TOUJEO [Suspect]
     Active Substance: INSULIN GLARGINE
     Indication: Diabetes mellitus
     Dosage: 45 IU, QD
     Route: 065
     Dates: start: 2023

REACTIONS (4)
  - Cerebrovascular accident [Unknown]
  - Confusional state [Unknown]
  - Walking aid user [Unknown]
  - Dyspnoea [Unknown]
